FAERS Safety Report 10184760 (Version 3)
Quarter: 2014Q4

REPORT INFORMATION
  Report Type: Report from Study
  Country: CA (occurrence: CA)
  Receive Date: 20140521
  Receipt Date: 20141121
  Transmission Date: 20150528
  Serious: Yes (Other)
  Sender: FDA-Public Use
  Company Number: PHHY2013CA129972

PATIENT
  Sex: Female

DRUGS (1)
  1. ZOMETA [Suspect]
     Active Substance: ZOLEDRONIC ACID
     Indication: BREAST CANCER
     Dosage: 4 MG, EVERY 6 MONTHS
     Route: 042
     Dates: start: 20090504

REACTIONS (6)
  - Hypokinesia [Unknown]
  - Feeling abnormal [Unknown]
  - Fall [Unknown]
  - Depression [Unknown]
  - Radius fracture [Unknown]
  - Weight increased [Unknown]

NARRATIVE: CASE EVENT DATE: 2014
